FAERS Safety Report 8632195 (Version 2)
Quarter: 2013Q4

REPORT INFORMATION
  Report Type: Spontaneous
  Country: US (occurrence: US)
  Receive Date: 20120625
  Receipt Date: 20131121
  Transmission Date: 20140711
  Serious: Yes (Hospitalization, Other)
  Sender: FDA-Public Use
  Company Number: US-ASTELLAS-2012US005532

PATIENT
  Age: 43 Year
  Sex: Male
  Weight: 46 kg

DRUGS (1)
  1. PROGRAF [Suspect]
     Indication: LIVER TRANSPLANT
     Dosage: 1 MG, BID
     Route: 048
     Dates: start: 20000613

REACTIONS (4)
  - Drug ineffective [Unknown]
  - Hospitalisation [Recovered/Resolved]
  - Dehydration [Recovered/Resolved]
  - Liver transplant rejection [Recovered/Resolved]
